FAERS Safety Report 17894734 (Version 1)
Quarter: 2020Q2

REPORT INFORMATION
  Report Type: Spontaneous
  Country: US (occurrence: US)
  Receive Date: 20200615
  Receipt Date: 20200615
  Transmission Date: 20200714
  Serious: Yes (Other)
  Sender: FDA-Public Use
  Company Number: US-STRIDES ARCOLAB LIMITED-2020SP003857

PATIENT
  Age: 60 Year
  Sex: Male

DRUGS (6)
  1. LORAZEPAM. [Concomitant]
     Active Substance: LORAZEPAM
     Indication: CATATONIA
     Dosage: 2 MILLIGRAM, SINGLE
     Route: 042
  2. LORAZEPAM. [Concomitant]
     Active Substance: LORAZEPAM
     Dosage: 2 MILLIGRAM, TID 3 TOTAL DOSES
     Route: 042
  3. MEMANTINE. [Suspect]
     Active Substance: MEMANTINE
     Indication: CATATONIA
     Dosage: 10 MILLIGRAM, BID
     Route: 048
  4. LORAZEPAM. [Concomitant]
     Active Substance: LORAZEPAM
     Dosage: 2 MILLIGRAM, TID
     Route: 048
  5. LORAZEPAM. [Concomitant]
     Active Substance: LORAZEPAM
     Dosage: 3 MILLIGRAM, QID
     Route: 048
  6. LORAZEPAM. [Concomitant]
     Active Substance: LORAZEPAM
     Dosage: 10 MILLIGRAM, TOTAL DAILY IN 3 DIVIDED DOSES
     Route: 065

REACTIONS (4)
  - Off label use [Unknown]
  - Illusion [Recovered/Resolved]
  - Hallucination, auditory [Recovered/Resolved]
  - Hallucination, visual [Recovered/Resolved]
